FAERS Safety Report 22241703 (Version 3)
Quarter: 2023Q2

REPORT INFORMATION
  Report Type: Report from Study
  Country: US (occurrence: US)
  Receive Date: 20230421
  Receipt Date: 20230617
  Transmission Date: 20230721
  Serious: Yes (Other)
  Sender: FDA-Public Use
  Company Number: US-002147023-NVSC2023US091126

PATIENT
  Sex: Female

DRUGS (1)
  1. PIQRAY [Suspect]
     Active Substance: ALPELISIB
     Indication: Breast cancer
     Dosage: 300 MG, QD
     Route: 048

REACTIONS (3)
  - Malignant neoplasm progression [Not Recovered/Not Resolved]
  - Diarrhoea [Not Recovered/Not Resolved]
  - Drug ineffective [Unknown]
